FAERS Safety Report 21866122 (Version 2)
Quarter: 2025Q3

REPORT INFORMATION
  Report Type: Spontaneous
  Country: US (occurrence: US)
  Receive Date: 20230116
  Receipt Date: 20250730
  Transmission Date: 20251021
  Serious: Yes (Hospitalization, Other)
  Sender: QILU PHARMACEUTICAL
  Company Number: US-QILU PHARMACEUTICAL CO.LTD.-QLU-000003-2023

PATIENT
  Age: 63 Year
  Sex: Male

DRUGS (7)
  1. OLANZAPINE [Suspect]
     Active Substance: OLANZAPINE
     Indication: Bipolar disorder
     Route: 065
     Dates: start: 2020
  2. OLANZAPINE [Suspect]
     Active Substance: OLANZAPINE
     Indication: Bipolar disorder
     Dosage: 20 MG PER DAY
     Route: 065
     Dates: start: 201912
  3. OLANZAPINE [Suspect]
     Active Substance: OLANZAPINE
     Indication: Agitation
  4. AVAPRITINIB [Suspect]
     Active Substance: AVAPRITINIB
     Indication: Gastrointestinal stromal tumour
     Dosage: 300 MG PER DAY
     Route: 065
     Dates: start: 202003
  5. AVAPRITINIB [Suspect]
     Active Substance: AVAPRITINIB
     Dosage: 200 MG PER DAY
     Route: 065
     Dates: start: 2020
  6. AVAPRITINIB [Suspect]
     Active Substance: AVAPRITINIB
     Dosage: 100 PER DAY (NEXT TWO MONTHS)
     Route: 065
     Dates: start: 2020
  7. DASATINIB [Concomitant]
     Active Substance: DASATINIB
     Route: 065
     Dates: end: 202003

REACTIONS (20)
  - Parkinson^s disease [Recovering/Resolving]
  - Memory impairment [Recovering/Resolving]
  - Hypophagia [Recovering/Resolving]
  - Patient elopement [Recovering/Resolving]
  - Salivary hypersecretion [Recovering/Resolving]
  - Nystagmus [Recovering/Resolving]
  - Mental status changes [Recovering/Resolving]
  - Agitation [Recovering/Resolving]
  - Posture abnormal [Recovering/Resolving]
  - Dysphonia [Recovering/Resolving]
  - Parkinsonism [Recovering/Resolving]
  - Tremor [Recovering/Resolving]
  - Bradykinesia [Recovering/Resolving]
  - Dysphagia [Recovering/Resolving]
  - Reduced facial expression [Recovering/Resolving]
  - Cogwheel rigidity [Recovering/Resolving]
  - Dysarthria [Recovering/Resolving]
  - Confusional state [Recovering/Resolving]
  - Confusional state [Recovering/Resolving]
  - Gait disturbance [Recovering/Resolving]
